FAERS Safety Report 14301076 (Version 3)
Quarter: 2018Q1

REPORT INFORMATION
  Report Type: Spontaneous
  Country: JP (occurrence: JP)
  Receive Date: 20171219
  Receipt Date: 20180315
  Transmission Date: 20180509
  Serious: Yes (Hospitalization)
  Sender: FDA-Public Use
  Company Number: JP-ACTELION-A-CH2017-163033

PATIENT
  Age: 81 Year
  Sex: Female

DRUGS (18)
  1. OPSUMIT [Suspect]
     Active Substance: MACITENTAN
     Dosage: 10 MG, QD
     Route: 048
     Dates: start: 20171207
  2. SAMSCA [Concomitant]
     Active Substance: TOLVAPTAN
  3. UPTRAVI [Suspect]
     Active Substance: SELEXIPAG
     Dosage: 1.4 MG, QD
     Route: 048
  4. OPSUMIT [Suspect]
     Active Substance: MACITENTAN
     Dosage: 2.5 MG, OD
     Route: 048
     Dates: start: 20170313, end: 20170320
  5. MAINTATE [Concomitant]
     Active Substance: BISOPROLOL FUMARATE
  6. OPSUMIT [Suspect]
     Active Substance: MACITENTAN
     Indication: PULMONARY ARTERIAL HYPERTENSION
     Dosage: 10 MG, OD
     Route: 048
     Dates: start: 20170329, end: 20171114
  7. OPSUMIT [Suspect]
     Active Substance: MACITENTAN
     Dosage: 5 MG, OD
     Route: 048
     Dates: start: 20170321, end: 20170328
  8. ASPARA POTASSIUM [Concomitant]
     Active Substance: POTASSIUM ASPARTATE
  9. UPTRAVI [Suspect]
     Active Substance: SELEXIPAG
     Indication: PULMONARY ARTERIAL HYPERTENSION
     Dosage: UNK
     Route: 048
     Dates: start: 20170707
  10. LANSOPRAZOLE. [Concomitant]
     Active Substance: LANSOPRAZOLE
  11. ADEMPAS [Concomitant]
     Active Substance: RIOCIGUAT
  12. OPSUMIT [Suspect]
     Active Substance: MACITENTAN
     Dosage: 5 MG, QD
     Route: 048
     Dates: start: 20171202, end: 20171206
  13. AZULFIDINE [Concomitant]
     Active Substance: SULFASALAZINE
  14. AZOSEMIDE [Concomitant]
     Active Substance: AZOSEMIDE
  15. OXYGEN. [Concomitant]
     Active Substance: OXYGEN
  16. CARELOAD [Concomitant]
     Active Substance: BERAPROST SODIUM
  17. ELIQUIS [Concomitant]
     Active Substance: APIXABAN
  18. SPIRONOLACTONE. [Concomitant]
     Active Substance: SPIRONOLACTONE

REACTIONS (6)
  - Weight increased [Recovering/Resolving]
  - Urine output decreased [Recovering/Resolving]
  - Pleural effusion [Recovering/Resolving]
  - Ascites [Recovering/Resolving]
  - Generalised oedema [Recovering/Resolving]
  - Oedema peripheral [Recovering/Resolving]

NARRATIVE: CASE EVENT DATE: 20171110
